FAERS Safety Report 22251961 (Version 1)
Quarter: 2023Q2

REPORT INFORMATION
  Report Type: Spontaneous
  Country: US (occurrence: US)
  Receive Date: 20230425
  Receipt Date: 20230425
  Transmission Date: 20230721
  Serious: No
  Sender: FDA-Public Use
  Company Number: US-ABBVIE-4739559

PATIENT
  Sex: Male

DRUGS (1)
  1. LEUPROLIDE [Suspect]
     Active Substance: LEUPROLIDE
     Indication: Product used for unknown indication
     Dosage: FREQUENCY TEXT, START DATE TEXT AND STOP DATE TEXT: UNKNOWN
     Route: 030

REACTIONS (1)
  - Dyspnoea [Unknown]
